FAERS Safety Report 13351614 (Version 1)
Quarter: 2017Q1

REPORT INFORMATION
  Report Type: Spontaneous
  Country: JP (occurrence: JP)
  Receive Date: 20170320
  Receipt Date: 20170320
  Transmission Date: 20170429
  Serious: Yes (Hospitalization, Other)
  Sender: FDA-Public Use
  Company Number: JP-BAYER-2017-046931

PATIENT
  Age: 33 Year
  Sex: Female

DRUGS (2)
  1. ACETYLSALICYLIC ACID({=100 MG) [Suspect]
     Active Substance: ASPIRIN
     Dosage: UNK
     Route: 048
  2. INSULIN [Concomitant]
     Active Substance: INSULIN NOS
     Indication: DIABETES MELLITUS
     Dosage: UNK

REACTIONS (10)
  - Bacteraemia [None]
  - Pulmonary oedema [None]
  - Respiratory failure [None]
  - Diabetic complication [None]
  - Pre-eclampsia [None]
  - Uterine infection [None]
  - Premature baby [None]
  - Threatened labour [Recovered/Resolved]
  - Postpartum haemorrhage [None]
  - Maternal exposure during pregnancy [Recovered/Resolved]
